FAERS Safety Report 6386031-3 (Version None)
Quarter: 2009Q4

REPORT INFORMATION
  Report Type: 
  Country: None (occurrence: None)
  Receive Date: 20091002
  Receipt Date: 20081103
  Transmission Date: 20100525
  Serious: No
  Sender: FDA-Public Use
  Company Number: US-ASTRAZENECA-2008UW24533

PATIENT
  Age: 80 Year
  Sex: Female
  Weight: 95.3 kg

DRUGS (5)
  1. ARIMIDEX [Suspect]
     Indication: BREAST CANCER STAGE III
     Route: 048
     Dates: start: 20050101
  2. SINGULAIR [Concomitant]
  3. SPIRIVA [Concomitant]
  4. PROAIR HFA [Concomitant]
  5. METHYLDOPA [Concomitant]

REACTIONS (2)
  - OEDEMA PERIPHERAL [None]
  - OESOPHAGEAL ULCER [None]
